FAERS Safety Report 24983905 (Version 1)
Quarter: 2025Q1

REPORT INFORMATION
  Report Type: Report from Study
  Country: US (occurrence: US)
  Receive Date: 20250219
  Receipt Date: 20250219
  Transmission Date: 20250408
  Serious: No
  Sender: BIOVITRUM
  Company Number: US-BIOVITRUM-2024-US-015838

PATIENT
  Age: 42 Year
  Sex: Female

DRUGS (1)
  1. KINERET [Suspect]
     Active Substance: ANAKINRA
     Indication: Still^s disease
     Route: 058
     Dates: start: 20241114

REACTIONS (5)
  - Inflammation [Unknown]
  - Pruritus [Unknown]
  - Intentional product misuse [Unknown]
  - Product use issue [Unknown]
  - Rash pruritic [Unknown]
